FAERS Safety Report 13306124 (Version 1)
Quarter: 2017Q1

REPORT INFORMATION
  Report Type: Spontaneous
  Country: US (occurrence: US)
  Receive Date: 20170308
  Receipt Date: 20170308
  Transmission Date: 20170428
  Serious: No
  Sender: FDA-Public Use
  Company Number: US-009507513-1702USA010212

PATIENT
  Sex: Female

DRUGS (1)
  1. NUVARING [Suspect]
     Active Substance: ETHINYL ESTRADIOL\ETONOGESTREL
     Indication: CONVULSION PROPHYLAXIS
     Dosage: .015/.12 (UNITS NOT PROVIDED), 1 DF, Q3W
     Route: 067

REACTIONS (3)
  - Product use issue [Unknown]
  - Inappropriate schedule of drug administration [Unknown]
  - Therapeutic response unexpected [Unknown]
